FAERS Safety Report 10910636 (Version 1)
Quarter: 2015Q1

REPORT INFORMATION
  Report Type: Spontaneous
  Country: US (occurrence: US)
  Receive Date: 20150312
  Receipt Date: 20150312
  Transmission Date: 20150721
  Serious: No
  Sender: FDA-Public Use
  Company Number: US-SA-2015SA005227

PATIENT
  Age: 68 Year
  Sex: Female

DRUGS (2)
  1. NASACORT ALLERGY 24HR [Suspect]
     Active Substance: TRIAMCINOLONE ACETONIDE
     Indication: NASOPHARYNGITIS
     Route: 045
     Dates: start: 20141119
  2. NASACORT ALLERGY 24HR [Suspect]
     Active Substance: TRIAMCINOLONE ACETONIDE
     Indication: NASOPHARYNGITIS
     Route: 065
     Dates: start: 201411

REACTIONS (2)
  - Therapeutic response decreased [Unknown]
  - Dysgeusia [Unknown]
